FAERS Safety Report 15082148 (Version 2)
Quarter: 2018Q3

REPORT INFORMATION
  Report Type: Spontaneous
  Country: ES (occurrence: ES)
  Receive Date: 20180628
  Receipt Date: 20180917
  Transmission Date: 20181010
  Serious: Yes (Hospitalization, Other)
  Sender: FDA-Public Use
  Company Number: ES-AMGEN-ESPSP2018085519

PATIENT
  Age: 77 Year
  Sex: Male

DRUGS (5)
  1. PROLIA [Suspect]
     Active Substance: DENOSUMAB
     Indication: OSTEOPOROSIS
     Dosage: 60 MG, Q6MO
     Route: 058
     Dates: start: 20171028, end: 20180503
  2. MASDIL [Concomitant]
     Active Substance: DILTIAZEM HYDROCHLORIDE
     Dosage: 120 MG, QD
  3. AVIDART [Concomitant]
     Active Substance: DUTASTERIDE
     Dosage: UNK, QD
  4. HIDROFEROL [Concomitant]
     Active Substance: CALCIFEDIOL
     Indication: VITAMIN D DEFICIENCY
     Dosage: 0.266 MG, QMO
     Dates: start: 20180320
  5. SINTROM [Concomitant]
     Active Substance: ACENOCOUMAROL
     Dosage: UNK UNK, QD

REACTIONS (2)
  - Skin necrosis [Unknown]
  - Hypersensitivity vasculitis [Recovered/Resolved]

NARRATIVE: CASE EVENT DATE: 2018
